FAERS Safety Report 25504003 (Version 1)
Quarter: 2025Q3

REPORT INFORMATION
  Report Type: Report from Study
  Country: CH (occurrence: CH)
  Receive Date: 20250702
  Receipt Date: 20250702
  Transmission Date: 20251020
  Serious: Yes (Death)
  Sender: MYLAN
  Company Number: CH-MYLANLABS-2025M1055027

PATIENT

DRUGS (4)
  1. SUNITINIB [Suspect]
     Active Substance: SUNITINIB
     Indication: Paraganglion neoplasm malignant
  2. SUNITINIB [Suspect]
     Active Substance: SUNITINIB
     Indication: Metastasis
     Route: 065
  3. SUNITINIB [Suspect]
     Active Substance: SUNITINIB
     Route: 065
  4. SUNITINIB [Suspect]
     Active Substance: SUNITINIB

REACTIONS (6)
  - Drug ineffective for unapproved indication [Fatal]
  - Disease progression [Fatal]
  - Vomiting [Unknown]
  - Weight decreased [Unknown]
  - Fatigue [Unknown]
  - Off label use [Unknown]
